FAERS Safety Report 12252132 (Version 1)
Quarter: 2016Q2

REPORT INFORMATION
  Report Type: Spontaneous
  Country: US (occurrence: None)
  Receive Date: 20160408
  Receipt Date: 20160408
  Transmission Date: 20160815
  Serious: No
  Sender: FDA-Public Use
  Company Number: None

PATIENT
  Age: 76 Year
  Sex: Female
  Weight: 77.57 kg

DRUGS (7)
  1. OMEPRAZOLE. [Concomitant]
     Active Substance: OMEPRAZOLE
  2. LIQUID VITAMINS [Concomitant]
  3. MINERALS [Concomitant]
     Active Substance: MINERALS
  4. CLINDAMYCIN HCL 300 MG CAPSULE [Suspect]
     Active Substance: CLINDAMYCIN HYDROCHLORIDE
     Indication: ENDODONTIC PROCEDURE
     Route: 048
     Dates: start: 20160224, end: 20160228
  5. LOSARTAN POTASSIUM. [Concomitant]
     Active Substance: LOSARTAN POTASSIUM
  6. EXCRIDEN [Concomitant]
  7. HCL [Concomitant]

REACTIONS (4)
  - Feeling hot [None]
  - Pruritus [None]
  - Product taste abnormal [None]
  - Rash generalised [None]

NARRATIVE: CASE EVENT DATE: 20160328
